FAERS Safety Report 14181836 (Version 1)
Quarter: 2017Q4

REPORT INFORMATION
  Report Type: Spontaneous
  Country: US (occurrence: US)
  Receive Date: 20171113
  Receipt Date: 20171113
  Transmission Date: 20180321
  Serious: No
  Sender: FDA-Public Use
  Company Number: US-TEVA-824065ACC

PATIENT
  Sex: Female

DRUGS (1)
  1. PARAGARD T 380A [Suspect]
     Active Substance: COPPER
     Dates: start: 20171018, end: 20171101

REACTIONS (3)
  - Device expulsion [Recovered/Resolved]
  - Pelvic pain [Unknown]
  - Urine analysis abnormal [Unknown]
